FAERS Safety Report 24777479 (Version 1)
Quarter: 2024Q4

REPORT INFORMATION
  Report Type: Spontaneous
  Country: GB (occurrence: GB)
  Receive Date: 20241226
  Receipt Date: 20241226
  Transmission Date: 20250115
  Serious: Yes (Other)
  Sender: PERRIGO
  Company Number: GB-MHRA-TPP25321237C9512001YC1724056330270

PATIENT
  Age: 54 Year
  Sex: Female
  Weight: 116 kg

DRUGS (8)
  1. FEXOFENADINE [Suspect]
     Active Substance: FEXOFENADINE HYDROCHLORIDE
     Indication: Ill-defined disorder
     Dosage: ONE TABLET TO BE TAKEN ONCE A DAY  FOR CHRONIC ...
     Route: 065
     Dates: start: 20240815
  2. EXEMESTANE [Concomitant]
     Active Substance: EXEMESTANE
     Indication: Ill-defined disorder
     Dosage: ONE TABLET TO BE TAKEN ONCE A DAY (FOR 10 YEARS...
     Route: 065
     Dates: start: 20240402, end: 20240522
  3. NAPROXEN [Concomitant]
     Active Substance: NAPROXEN
     Indication: Ill-defined disorder
     Dosage: ONE TO BE TAKEN TWICE DAILY WHEN REQUIRED FOR PAIN
     Route: 065
     Dates: start: 20240402
  4. OMEPRAZOLE [Concomitant]
     Active Substance: OMEPRAZOLE
     Indication: Ill-defined disorder
     Dosage: ONE CAPSULE TO BE TAKEN ONCE A DAY TO REDUCE ST...
     Route: 065
     Dates: start: 20240402
  5. OXYBUTYNIN [Concomitant]
     Active Substance: OXYBUTYNIN
     Indication: Ill-defined disorder
     Dosage: TWO TABLETS TO BE TAKEN AT NIGHT
     Route: 065
     Dates: start: 20240402
  6. TEGRETOL [Concomitant]
     Active Substance: CARBAMAZEPINE
     Indication: Ill-defined disorder
     Dosage: 1 TO BE TAKEN EACH NIGHT
     Route: 065
     Dates: start: 20240402
  7. VENLAFAXINE HYDROCHLORIDE [Concomitant]
     Active Substance: VENLAFAXINE HYDROCHLORIDE
     Indication: Ill-defined disorder
     Dosage: ONE CAPSULE TO BE TAKEN ONCE A DAY
     Route: 065
     Dates: start: 20240402
  8. AROMASIN [Concomitant]
     Active Substance: EXEMESTANE
     Indication: Ill-defined disorder
     Dosage: TAKE ONE ONCE DAILY (FOR 10YRS UNTIL 2033)
     Route: 065
     Dates: start: 20240522

REACTIONS (1)
  - Angioedema [Recovered/Resolved]
